FAERS Safety Report 6140361-9 (Version None)
Quarter: 2009Q2

REPORT INFORMATION
  Report Type: 
  Country: None (occurrence: None)
  Receive Date: 20090401
  Receipt Date: 20090324
  Transmission Date: 20091009
  Serious: Yes (Disabling)
  Sender: FDA-Public Use
  Company Number: FR-GILEAD-2009-0021059

PATIENT
  Sex: Male

DRUGS (5)
  1. VIREAD [Suspect]
     Indication: ACQUIRED IMMUNODEFICIENCY SYNDROME
     Route: 048
     Dates: start: 20020603
  2. KIVEXA [Suspect]
     Indication: ACQUIRED IMMUNODEFICIENCY SYNDROME
     Route: 048
     Dates: start: 20040713
  3. REYATAZ [Suspect]
     Indication: ACQUIRED IMMUNODEFICIENCY SYNDROME
     Route: 048
     Dates: start: 20040505
  4. ABACAVIR [Concomitant]
     Dates: start: 20010611
  5. LAMIVUDINE [Concomitant]
     Dates: start: 19960415

REACTIONS (4)
  - ARTHRALGIA [None]
  - JOINT EFFUSION [None]
  - MUSCULOSKELETAL PAIN [None]
  - OSTEONECROSIS [None]
